FAERS Safety Report 10049000 (Version 2)
Quarter: 2014Q2

REPORT INFORMATION
  Report Type: Spontaneous
  Country: US (occurrence: US)
  Receive Date: 20140331
  Receipt Date: 20140508
  Transmission Date: 20141212
  Serious: No
  Sender: FDA-Public Use
  Company Number: US-009507513-1403USA012875

PATIENT
  Age: 79 Year
  Sex: Female
  Weight: 74.83 kg

DRUGS (9)
  1. OXYTROL FOR WOMEN [Suspect]
     Indication: HYPERTONIC BLADDER
     Dosage: 1 DF, Q4D
     Route: 062
  2. CELEBREX [Concomitant]
     Indication: OSTEOARTHRITIS
     Dosage: UNK, UNKNOWN
  3. BONIVA [Concomitant]
     Indication: OSTEOPENIA
     Dosage: UNK, UNKNOWN
  4. CALTRATE (CALCIUM CARBONATE (+) CHOLECALCIFEROL) [Concomitant]
     Indication: OSTEOPENIA
     Dosage: UNK, UNKNOWN
  5. OMEPRAZOLE [Concomitant]
     Indication: GASTROOESOPHAGEAL REFLUX DISEASE
     Dosage: UNK, UNKNOWN
  6. VITAMIN E [Concomitant]
     Indication: PRODUCT USED FOR UNKNOWN INDICATION
     Dosage: UNK, UNKNOWN
  7. CYANOCOBALAMIN [Concomitant]
     Indication: PRODUCT USED FOR UNKNOWN INDICATION
     Dosage: UNK, UNKNOWN
  8. LECITHIN [Concomitant]
     Indication: PRODUCT USED FOR UNKNOWN INDICATION
     Dosage: UNK, UNKNOWN
  9. FOLIC ACID [Concomitant]
     Indication: PRODUCT USED FOR UNKNOWN INDICATION

REACTIONS (3)
  - Blister [Recovering/Resolving]
  - Rash pruritic [Recovering/Resolving]
  - Rash erythematous [Recovering/Resolving]
